FAERS Safety Report 5715582-7 (Version None)
Quarter: 2008Q2

REPORT INFORMATION
  Report Type: 
  Country: None (occurrence: None)
  Receive Date: 20080423
  Receipt Date: 20080423
  Transmission Date: 20081010
  Serious: Yes (Other)
  Sender: FDA-Public Use
  Company Number: None

PATIENT
  Sex: Male
  Weight: 40 kg

DRUGS (3)
  1. ALLERGY SERUM 1:10,000 ALLERGY LABORATORIES, INC. [Suspect]
     Indication: ANTIALLERGIC THERAPY
     Dosage: INCREASING INJECTIONS WEEKLY SQ
     Route: 058
     Dates: start: 20071101, end: 20080301
  2. CLARITIN [Concomitant]
  3. XOPENEX [Concomitant]

REACTIONS (1)
  - SWELLING [None]
